FAERS Safety Report 9601747 (Version 1)
Quarter: 2013Q4

REPORT INFORMATION
  Report Type: Spontaneous
  Country: US (occurrence: US)
  Receive Date: 20131007
  Receipt Date: 20131007
  Transmission Date: 20140711
  Serious: No
  Sender: FDA-Public Use
  Company Number: US-BAYER-2013-120420

PATIENT
  Sex: Female
  Weight: 54.42 kg

DRUGS (16)
  1. BETASERON [Suspect]
     Indication: MULTIPLE SCLEROSIS
     Dosage: 0.25 MG, QOD
     Route: 058
  2. LEXAPRO [Concomitant]
  3. NEURONTIN [Concomitant]
  4. SYNTHROID [Concomitant]
  5. HYDROCHLOROTHIAZID [Concomitant]
  6. NADOLOL [Concomitant]
  7. ZETIA [Concomitant]
  8. PHENTERMINE [Concomitant]
  9. TYLENOL ARTHRITIS [Concomitant]
  10. SKELAXIN [Concomitant]
  11. TYLENOL WITH CODEINE [Concomitant]
  12. VITAMIN D NOS [Concomitant]
  13. MAGNESIUM ACETATE [Concomitant]
  14. CLARITIN [Concomitant]
  15. PRILOSEC [Concomitant]
  16. SUDAFED PE [Concomitant]

REACTIONS (3)
  - Unevaluable event [Unknown]
  - Hepatic enzyme increased [Unknown]
  - White blood cell count decreased [Unknown]
